FAERS Safety Report 19037303 (Version 1)
Quarter: 2021Q1

REPORT INFORMATION
  Report Type: Spontaneous
  Country: US (occurrence: US)
  Receive Date: 20210322
  Receipt Date: 20210322
  Transmission Date: 20210420
  Serious: Yes (Hospitalization, Other)
  Sender: FDA-Public Use
  Company Number: US-EPICPHARMA-US-2021EPCLIT00274

PATIENT
  Age: 48 Year
  Sex: Female

DRUGS (4)
  1. METHADONE [Suspect]
     Active Substance: METHADONE HYDROCHLORIDE
     Indication: CROHN^S DISEASE
     Route: 065
  2. HYDROCORTISONE. [Interacting]
     Active Substance: HYDROCORTISONE
     Indication: SECONDARY ADRENOCORTICAL INSUFFICIENCY
     Route: 048
  3. OXYCODONE HYDROCHLORIDE. [Suspect]
     Active Substance: OXYCODONE HYDROCHLORIDE
     Indication: CROHN^S DISEASE
     Route: 065
  4. DEXAMETHASONE. [Interacting]
     Active Substance: DEXAMETHASONE
     Indication: SECONDARY ADRENOCORTICAL INSUFFICIENCY
     Route: 065

REACTIONS (3)
  - Drug abuse [Unknown]
  - Secondary adrenocortical insufficiency [Recovering/Resolving]
  - Hypothalamic pituitary adrenal axis suppression [Recovering/Resolving]
